FAERS Safety Report 7932798-X (Version None)
Quarter: 2011Q4

REPORT INFORMATION
  Report Type: 
  Country: None (occurrence: None)
  Receive Date: 20111122
  Receipt Date: 20111117
  Transmission Date: 20120403
  Serious: Yes (Hospitalization, Other)
  Sender: FDA-Public Use
  Company Number: FR-BRISTOL-MYERS SQUIBB COMPANY-16191355

PATIENT
  Age: 59 Year
  Sex: Female
  Weight: 88 kg

DRUGS (4)
  1. NEXIUM [Concomitant]
     Indication: ULCER
     Route: 048
     Dates: start: 20100701
  2. IPILIMUMAB [Suspect]
     Indication: METASTATIC MALIGNANT MELANOMA
     Dosage: 2ND ON 24AUG11,3RD ON 14SEP11,NO OF INF: 3
     Route: 042
     Dates: start: 20110803, end: 20110101
  3. CYCLOPHOSPHAMIDE [Concomitant]
     Indication: METASTATIC MALIGNANT MELANOMA
     Route: 048
     Dates: start: 20110914, end: 20111010
  4. FERROUS SULFATE TAB [Concomitant]
     Dosage: IRON
     Route: 048

REACTIONS (5)
  - RENAL FAILURE ACUTE [None]
  - DEHYDRATION [None]
  - NAUSEA [None]
  - VOMITING [None]
  - PROTEINURIA [None]
